FAERS Safety Report 10037621 (Version 1)
Quarter: 2014Q1

REPORT INFORMATION
  Report Type: Spontaneous
  Country: FR (occurrence: None)
  Receive Date: 20140324
  Receipt Date: 20140324
  Transmission Date: 20141002
  Serious: Yes (Hospitalization)
  Sender: FDA-Public Use
  Company Number: SYM-2014-18733

PATIENT
  Age: 37 Year
  Sex: Male

DRUGS (3)
  1. FLAGYL (METRONIDAZOLE) (METRONIDAZOLE) [Suspect]
     Indication: INFECTION
     Dates: start: 20131210, end: 20140103
  2. TRIFLUCAN [Suspect]
     Indication: PRODUCT USED FOR UNKNOWN INDICATION
     Dates: start: 20131206, end: 20140103
  3. TAZOCILLINE [Suspect]
     Indication: INFECTION
     Dates: start: 20131223, end: 20140104

REACTIONS (10)
  - Histiocytosis haematophagic [None]
  - Renal failure acute [None]
  - Pyrexia [None]
  - Vomiting [None]
  - Diarrhoea [None]
  - Mouth haemorrhage [None]
  - Epistaxis [None]
  - Haematuria [None]
  - Diabetes mellitus [None]
  - Hepatitis [None]
